FAERS Safety Report 4593404-8 (Version None)
Quarter: 2005Q1

REPORT INFORMATION
  Report Type: 
  Country: None (occurrence: None)
  Receive Date: 20050224
  Receipt Date: 20040608
  Transmission Date: 20050727
  Serious: No
  Sender: FDA-Public Use
  Company Number: US-BRISTOL-MYERS SQUIBB COMPANY-12609657

PATIENT
  Age: 33 Year
  Sex: Female
  Weight: 52 kg

DRUGS (2)
  1. EXCEDRIN (MIGRAINE) [Suspect]
     Indication: PAIN
     Dosage: TOOK ONE TAB THE THIRD DAY.
     Route: 048
     Dates: start: 20040523, end: 20040525
  2. EXCEDRIN (MIGRAINE) [Suspect]
     Indication: INFLUENZA LIKE ILLNESS
     Dosage: TOOK ONE TAB THE THIRD DAY.
     Route: 048
     Dates: start: 20040523, end: 20040525

REACTIONS (1)
  - INSOMNIA [None]
